FAERS Safety Report 24076574 (Version 3)
Quarter: 2024Q3

REPORT INFORMATION
  Report Type: Spontaneous
  Country: US (occurrence: US)
  Receive Date: 20240711
  Receipt Date: 20240717
  Transmission Date: 20241017
  Serious: No
  Sender: BOEHRINGER INGELHEIM
  Company Number: US-BoehringerIngelheim-2024-BI-039156

PATIENT

DRUGS (2)
  1. JARDIANCE [Suspect]
     Active Substance: EMPAGLIFLOZIN
     Indication: Product used for unknown indication
  2. JARDIANCE [Suspect]
     Active Substance: EMPAGLIFLOZIN

REACTIONS (1)
  - Drug ineffective [Unknown]
